FAERS Safety Report 6656749-3 (Version None)
Quarter: 2010Q1

REPORT INFORMATION
  Report Type: 
  Country: None (occurrence: None)
  Receive Date: 20100329
  Receipt Date: 20100319
  Transmission Date: 20100710
  Serious: Yes (Hospitalization)
  Sender: FDA-Public Use
  Company Number: AT-ABBOTT-10P-009-0633132-00

PATIENT
  Age: 62 Year
  Sex: Male

DRUGS (1)
  1. REDUCTIL 15MG [Suspect]
     Indication: WEIGHT CONTROL
     Dosage: DAILY
     Dates: start: 20100223, end: 20100223

REACTIONS (1)
  - WALLENBERG SYNDROME [None]
